FAERS Safety Report 16210756 (Version 1)
Quarter: 2019Q2

REPORT INFORMATION
  Report Type: Spontaneous
  Country: US (occurrence: US)
  Receive Date: 20190418
  Receipt Date: 20190418
  Transmission Date: 20190711
  Serious: No
  Sender: FDA-Public Use
  Company Number: US-BEH-2019101541

PATIENT
  Sex: Female

DRUGS (2)
  1. HIZENTRA [Suspect]
     Active Substance: HUMAN IMMUNOGLOBULIN G
     Indication: IMMUNODEFICIENCY COMMON VARIABLE
     Dosage: 2 G, QD
     Route: 058
     Dates: start: 20180406
  2. ESOMEPRAZOL                        /01479302/ [Concomitant]
     Active Substance: ESOMEPRAZOLE

REACTIONS (2)
  - Infection [Not Recovered/Not Resolved]
  - Chills [Not Recovered/Not Resolved]
